FAERS Safety Report 22176056 (Version 1)
Quarter: 2023Q2

REPORT INFORMATION
  Report Type: Spontaneous
  Country: US (occurrence: None)
  Receive Date: 20230404
  Receipt Date: 20230404
  Transmission Date: 20230721
  Serious: Yes (Other)
  Sender: FDA-Public Use
  Company Number: None

PATIENT
  Age: 54 Year
  Sex: Male
  Weight: 137.25 kg

DRUGS (24)
  1. HYDROCODONE BITARTRATE [Suspect]
     Active Substance: HYDROCODONE BITARTRATE
     Indication: Pain
     Dosage: 30 TABLETS DAILY ORAL?
     Route: 048
     Dates: start: 20230126, end: 20230330
  2. DEVICE [Concomitant]
     Active Substance: DEVICE
  3. home O2 [Concomitant]
  4. NORCO [Concomitant]
     Active Substance: ACETAMINOPHEN\HYDROCODONE BITARTRATE
  5. HYSINGLA ER [Concomitant]
     Active Substance: HYDROCODONE BITARTRATE
  6. LYRICA [Concomitant]
     Active Substance: PREGABALIN
  7. BACLOFEN [Concomitant]
     Active Substance: BACLOFEN
  8. MARINOL [Concomitant]
     Active Substance: DRONABINOL
  9. Movantic [Concomitant]
  10. Amatiza [Concomitant]
  11. Clarenex [Concomitant]
  12. SINGULAIR [Concomitant]
     Active Substance: MONTELUKAST SODIUM
  13. TESTOPEL [Concomitant]
     Active Substance: TESTOSTERONE
  14. UNSPECIFIED INGREDIENT [Concomitant]
     Active Substance: UNSPECIFIED INGREDIENT
  15. Motoperal [Concomitant]
  16. PLAVIX [Concomitant]
     Active Substance: CLOPIDOGREL BISULFATE
  17. CIALIS [Concomitant]
     Active Substance: TADALAFIL
  18. FLOMAX [Concomitant]
     Active Substance: TAMSULOSIN HYDROCHLORIDE
  19. FENOFIBRATE [Concomitant]
     Active Substance: FENOFIBRATE
  20. LIPITOR [Concomitant]
     Active Substance: ATORVASTATIN CALCIUM
  21. Perindopil [Concomitant]
  22. erbumine [Concomitant]
  23. PREVACID [Concomitant]
     Active Substance: LANSOPRAZOLE
  24. One a day men^s multi vitamin [Concomitant]

REACTIONS (8)
  - Product substitution issue [None]
  - Therapeutic product effect decreased [None]
  - Overdose [None]
  - Euphoric mood [None]
  - Heart rate decreased [None]
  - Loss of personal independence in daily activities [None]
  - Mental disorder [None]
  - Somnolence [None]

NARRATIVE: CASE EVENT DATE: 20230126
